FAERS Safety Report 6033491-3 (Version None)
Quarter: 2009Q1

REPORT INFORMATION
  Report Type: 
  Country: None (occurrence: None)
  Receive Date: 20090109
  Receipt Date: 20090102
  Transmission Date: 20090719
  Serious: Yes (Other)
  Sender: FDA-Public Use
  Company Number: CA-ROXANE LABORATORIES, INC.-2009-RO-00005RO

PATIENT
  Age: 50 Year
  Sex: Female

DRUGS (3)
  1. MYCOPHENOLATE MOFETIL [Suspect]
     Indication: IMMUNOSUPPRESSION
     Dosage: 1000MG
  2. PREDNISONE TAB [Suspect]
     Indication: IMMUNOSUPPRESSION
  3. SIROLIMUS [Suspect]
     Indication: IMMUNOSUPPRESSION
     Dosage: 3MG
     Dates: start: 20060401

REACTIONS (1)
  - CATHETER RELATED COMPLICATION [None]
